FAERS Safety Report 5463402-0 (Version None)
Quarter: 2007Q3

REPORT INFORMATION
  Report Type: 
  Country: None (occurrence: None)
  Receive Date: 20070920
  Receipt Date: 20070911
  Transmission Date: 20080115
  Serious: Yes (Other)
  Sender: FDA-Public Use
  Company Number: GB-BAUSCH-2007BL003238

PATIENT
  Age: 38 Year
  Sex: Male
  Weight: 75 kg

DRUGS (6)
  1. GENTAMICIN SULFATE [Suspect]
     Indication: DRUG USE FOR UNKNOWN INDICATION
     Route: 042
     Dates: start: 20070517, end: 20070522
  2. AMOXICILLIN [Concomitant]
     Route: 042
     Dates: start: 20070517, end: 20070523
  3. DALTEPARIN SODIUM [Concomitant]
     Route: 058
     Dates: start: 20070517, end: 20070524
  4. METRONIDAZOLE [Concomitant]
     Route: 042
     Dates: start: 20070517, end: 20070523
  5. ACETAMINOPHEN [Concomitant]
     Route: 048
     Dates: start: 20070517, end: 20070524
  6. TRAMADOL HCL [Concomitant]
     Route: 048
     Dates: start: 20070517, end: 20070524

REACTIONS (2)
  - BALANCE DISORDER [None]
  - VERTIGO [None]
